FAERS Safety Report 13954446 (Version 1)
Quarter: 2017Q3

REPORT INFORMATION
  Report Type: Spontaneous
  Country: US (occurrence: US)
  Receive Date: 20170911
  Receipt Date: 20170911
  Transmission Date: 20171128
  Serious: No
  Sender: FDA-Public Use
  Company Number: US-ELI_LILLY_AND_COMPANY-US201709001386

PATIENT
  Sex: Male

DRUGS (2)
  1. HUMALOG [Suspect]
     Active Substance: INSULIN LISPRO
     Indication: DIABETES MELLITUS
     Dosage: 22 IU, UNKNOWN
     Route: 058
     Dates: start: 20170818
  2. HUMALOG [Suspect]
     Active Substance: INSULIN LISPRO
     Dosage: 22 IU, UNKNOWN
     Route: 058
     Dates: start: 20170830

REACTIONS (2)
  - Colour blindness [Unknown]
  - Incorrect dose administered [Unknown]

NARRATIVE: CASE EVENT DATE: 20170818
